FAERS Safety Report 8581183-9 (Version None)
Quarter: 2012Q3

REPORT INFORMATION
  Report Type: 
  Country: None (occurrence: None)
  Receive Date: 20120809
  Receipt Date: 20120731
  Transmission Date: 20120928
  Serious: Yes (Hospitalization)
  Sender: FDA-Public Use
  Company Number: US-BAYER-2012-045926

PATIENT
  Age: 18 Year
  Sex: Female

DRUGS (5)
  1. TYLENOL [Concomitant]
     Dosage: 650 MG, UNK
     Route: 048
     Dates: start: 20110501
  2. AMOXICILLIN [Concomitant]
     Dosage: 850 MG, BID
     Route: 048
     Dates: start: 20110501
  3. YAZ [Suspect]
  4. YASMIN [Suspect]
  5. LORTAB [Concomitant]
     Indication: PAIN
     Dosage: 7.5 MG, PRN

REACTIONS (9)
  - INJURY [None]
  - ANHEDONIA [None]
  - FEAR [None]
  - EMOTIONAL DISTRESS [None]
  - PULMONARY EMBOLISM [None]
  - DEEP VEIN THROMBOSIS [None]
  - PAIN [None]
  - QUALITY OF LIFE DECREASED [None]
  - ANXIETY [None]
